FAERS Safety Report 8844003 (Version 1)
Quarter: 2012Q4

REPORT INFORMATION
  Report Type: 
  Country: US (occurrence: US)
  Receive Date: 20121017
  Receipt Date: 20121017
  Transmission Date: 20130627
  Serious: No
  Sender: FDA-Public Use
  Company Number: US-BIOGENIDEC-2012BI039128

PATIENT
  Age: 47 None
  Sex: Male

DRUGS (2)
  1. AVONEX [Suspect]
     Indication: MULTIPLE SCLEROSIS
     Route: 030
     Dates: start: 20120701
  2. AVONEX [Suspect]
     Indication: MULTIPLE SCLEROSIS
     Route: 030
     Dates: start: 20120730

REACTIONS (8)
  - Sensation of heaviness [Not Recovered/Not Resolved]
  - Weight decreased [Not Recovered/Not Resolved]
  - Motion sickness [Recovered/Resolved]
  - Colour blindness acquired [Not Recovered/Not Resolved]
  - Headache [Recovered/Resolved]
  - Injection site reaction [Not Recovered/Not Resolved]
  - Night sweats [Recovered/Resolved]
  - Multiple sclerosis relapse [Recovered/Resolved]
